FAERS Safety Report 24666043 (Version 1)
Quarter: 2024Q4

REPORT INFORMATION
  Report Type: Spontaneous
  Country: CN (occurrence: CN)
  Receive Date: 20241126
  Receipt Date: 20241126
  Transmission Date: 20250114
  Serious: Yes (Life-Threatening, Other)
  Sender: FRESENIUS KABI
  Company Number: CN-FreseniusKabi-FK202417454

PATIENT
  Age: 39 Year
  Sex: Female
  Weight: 48.5 kg

DRUGS (12)
  1. PROPOFOL [Suspect]
     Active Substance: PROPOFOL
     Indication: General anaesthesia
     Dosage: FOA: INJECTION?ROA: PUMP INJECTION
     Dates: start: 20241031, end: 20241031
  2. TRANEXAMIC ACID [Suspect]
     Active Substance: TRANEXAMIC ACID
     Indication: Haemorrhage
     Dosage: FOA: INJECTION
     Route: 041
     Dates: start: 20241031, end: 20241031
  3. CEFUROXIME SODIUM [Suspect]
     Active Substance: CEFUROXIME SODIUM
     Indication: Prophylaxis
     Dosage: FOA: POWDER FOR INJECTION
     Route: 041
     Dates: start: 20241031, end: 20241031
  4. CEFUROXIME SODIUM [Suspect]
     Active Substance: CEFUROXIME SODIUM
     Indication: Prophylaxis
  5. CEFUROXIME SODIUM [Suspect]
     Active Substance: CEFUROXIME SODIUM
     Indication: Induction of anaesthesia
  6. REMIFENTANIL HYDROCHLORIDE [Suspect]
     Active Substance: REMIFENTANIL HYDROCHLORIDE
     Indication: General anaesthesia
     Dosage: FOA: POWDER FOR INJECTION?ROA: PUMP INJECTION
     Dates: start: 20241031, end: 20241031
  7. DEXMEDETOMIDINE HYDROCHLORIDE [Suspect]
     Active Substance: DEXMEDETOMIDINE HYDROCHLORIDE
     Indication: General anaesthesia
     Dosage: FOA: INJECTION?ROA: PUMP INJECTION
     Dates: start: 20241031, end: 20241031
  8. ROCURONIUM BROMIDE [Suspect]
     Active Substance: ROCURONIUM BROMIDE
     Indication: General anaesthesia
     Dosage: FOA: INJECTION?ROA: PUMP INJECTION
     Dates: start: 20241031, end: 20241031
  9. SODIUM CHLORIDE [Concomitant]
     Active Substance: SODIUM CHLORIDE
     Indication: Vehicle solution use
     Dosage: FOA: INJECTION
     Route: 041
     Dates: start: 20241031, end: 20241031
  10. DEXTROSE [Concomitant]
     Active Substance: DEXTROSE MONOHYDRATE
     Indication: Vehicle solution use
     Dosage: FOA: INJECTION
     Route: 041
     Dates: start: 20241031, end: 20241031
  11. CALCIUM GLUCONATE [Concomitant]
     Active Substance: CALCIUM GLUCONATE
     Indication: Mineral supplementation
     Dosage: FOA: INJECTION
     Route: 041
     Dates: start: 20241031, end: 20241031
  12. Noradrenaline Bitartrate Injection [Concomitant]
     Indication: Blood pressure abnormal
     Dosage: FOA: INJECTION?ROA: PUMP INJECTION
     Dates: start: 20241031, end: 20241031

REACTIONS (1)
  - Anaphylactic shock [Recovering/Resolving]

NARRATIVE: CASE EVENT DATE: 20241031
